FAERS Safety Report 9510977 (Version 1)
Quarter: 2013Q3

REPORT INFORMATION
  Report Type: Spontaneous
  Country: NL (occurrence: None)
  Receive Date: 20130905
  Receipt Date: 20130905
  Transmission Date: 20140515
  Serious: Yes (Death)
  Sender: FDA-Public Use
  Company Number: SP06955

PATIENT
  Age: 71 Year
  Sex: Female

DRUGS (5)
  1. MOVIPREP [Suspect]
     Indication: BOWEL PREPARATION
     Route: 048
  2. CO-DIOVAN [Concomitant]
  3. ATENOLOL [Concomitant]
  4. CEMETIDINE [Concomitant]
  5. LORAZEPAM [Concomitant]

REACTIONS (16)
  - Pallor [None]
  - Oedema peripheral [None]
  - Oedema peripheral [None]
  - Unresponsive to stimuli [None]
  - Ventricular fibrillation [None]
  - Shock [None]
  - Hypokalaemia [None]
  - Skin discolouration [None]
  - Oedema peripheral [None]
  - Metabolic acidosis [None]
  - Renal disorder [None]
  - Hypoxia [None]
  - Alkalosis [None]
  - General physical health deterioration [None]
  - Miosis [None]
  - Incorrect dose administered [None]
